FAERS Safety Report 11065390 (Version 2)
Quarter: 2015Q2

REPORT INFORMATION
  Report Type: Spontaneous
  Country: US (occurrence: US)
  Receive Date: 20150425
  Receipt Date: 20150525
  Transmission Date: 20150821
  Serious: No
  Sender: FDA-Public Use
  Company Number: US-JNJFOC-20131017950

PATIENT
  Age: 49 Year
  Sex: Female
  Weight: 122.47 kg

DRUGS (3)
  1. STELARA [Suspect]
     Active Substance: USTEKINUMAB
     Indication: PSORIASIS
     Route: 058
     Dates: start: 2013
  2. XANAX [Concomitant]
     Active Substance: ALPRAZOLAM
     Indication: ANXIETY
     Route: 048
  3. CORTISONE [Concomitant]
     Active Substance: CORTISONE\HYDROCORTISONE
     Indication: ARTHRITIS
     Route: 065
     Dates: start: 2013

REACTIONS (4)
  - Skin exfoliation [Not Recovered/Not Resolved]
  - Hypoaesthesia [Not Recovered/Not Resolved]
  - Swelling [Not Recovered/Not Resolved]
  - Pain of skin [Not Recovered/Not Resolved]

NARRATIVE: CASE EVENT DATE: 201308
